FAERS Safety Report 8799052 (Version 1)
Quarter: 2012Q4

REPORT INFORMATION
  Report Type: 
  Country: FR (occurrence: FR)
  Receive Date: 20120920
  Receipt Date: 20120920
  Transmission Date: 20130627
  Serious: Yes (Hospitalization)
  Sender: FDA-Public Use
  Company Number: FR-NOVOPROD-359866

PATIENT
  Age: 80 Year
  Sex: Male

DRUGS (11)
  1. NOVONORM [Suspect]
     Indication: PRODUCT USED FOR UNKNOWN INDICATION
     Dosage: 6 mg, qd
     Route: 048
     Dates: start: 201206, end: 20120714
  2. LAMICTAL [Suspect]
     Indication: PRODUCT USED FOR UNKNOWN INDICATION
     Dosage: 25 mg, qd
     Route: 048
     Dates: start: 20120606, end: 20120714
  3. LANTUS [Suspect]
     Indication: PRODUCT USED FOR UNKNOWN INDICATION
     Dosage: UNK
     Dates: start: 201206, end: 20120714
  4. ZOLOFT [Suspect]
     Indication: PRODUCT USED FOR UNKNOWN INDICATION
     Dosage: 75 mg, qd
     Route: 048
     Dates: start: 201204
  5. MIANSERIN HYDROCHLORIDE [Suspect]
     Indication: PRODUCT USED FOR UNKNOWN INDICATION
     Dosage: 10 mg, qd
     Route: 048
     Dates: start: 201204
  6. LIORESAL [Suspect]
     Indication: PRODUCT USED FOR UNKNOWN INDICATION
     Dosage: 5 mg, qd
     Route: 048
     Dates: start: 201204
  7. CIRCADIN [Suspect]
     Indication: PRODUCT USED FOR UNKNOWN INDICATION
     Dosage: 2 mg as needed
     Dates: start: 201204
  8. AXELER [Concomitant]
     Dosage: 25 mg, qd
     Route: 048
  9. BISOPROLOL [Concomitant]
     Dosage: 10 mg, qd
     Route: 048
  10. ZOCOR [Concomitant]
     Dosage: 20 mg, qd
     Route: 048
  11. KARDEGIC [Concomitant]
     Dosage: 75 mg

REACTIONS (5)
  - Drug reaction with eosinophilia and systemic symptoms [Recovering/Resolving]
  - Eosinophilia [Recovered/Resolved]
  - Odynophagia [Recovered/Resolved]
  - Oedema [Recovered/Resolved]
  - Erythema [Recovered/Resolved]
